FAERS Safety Report 8850828 (Version 1)
Quarter: 2012Q4

REPORT INFORMATION
  Report Type: 
  Country: DE (occurrence: DE)
  Receive Date: 20121019
  Receipt Date: 20121019
  Transmission Date: 20130627
  Serious: Yes (Other)
  Sender: FDA-Public Use
  Company Number: DE-UCBSA-068953

PATIENT
  Sex: Female

DRUGS (4)
  1. KEPPRA [Suspect]
     Route: 048
     Dates: start: 201209, end: 2012
  2. KEPPRA [Suspect]
     Dosage: DOWN TITRATED DOSE
     Route: 048
     Dates: start: 2012, end: 201210
  3. ORFIRIL [Concomitant]
     Dosage: 300 MG 2-0-2
     Route: 048
  4. ORFIRIL [Concomitant]

REACTIONS (3)
  - Mental impairment [Unknown]
  - Delusional perception [Unknown]
  - Activities of daily living impaired [Unknown]
